FAERS Safety Report 10777518 (Version 2)
Quarter: 2015Q1

REPORT INFORMATION
  Report Type: Report from Study
  Country: BR (occurrence: BR)
  Receive Date: 20150209
  Receipt Date: 20150224
  Transmission Date: 20150721
  Serious: Yes (Other)
  Sender: FDA-Public Use
  Company Number: PHHY2015BR014704

PATIENT
  Sex: Female
  Weight: 57 kg

DRUGS (3)
  1. DIOVAN [Suspect]
     Active Substance: VALSARTAN
     Dosage: 1 DF (160MG), QD
     Route: 048
  2. DIOVAN [Suspect]
     Active Substance: VALSARTAN
     Indication: HYPERTENSION
     Dosage: 1 DF (80MG), QD
     Route: 048
     Dates: start: 2006
  3. THYROXINE SODIUM [Concomitant]
     Active Substance: LEVOTHYROXINE SODIUM
     Indication: AUTOIMMUNE THYROIDITIS
     Dosage: 1 DF, QD
     Route: 048

REACTIONS (3)
  - Goitre [Recovering/Resolving]
  - Osteopenia [Unknown]
  - Thyroid neoplasm [Recovering/Resolving]
